FAERS Safety Report 14157066 (Version 1)
Quarter: 2017Q4

REPORT INFORMATION
  Report Type: Spontaneous
  Country: US (occurrence: None)
  Receive Date: 20171103
  Receipt Date: 20171103
  Transmission Date: 20180321
  Serious: Yes (Hospitalization)
  Sender: FDA-Public Use
  Company Number: None

PATIENT
  Sex: Female

DRUGS (20)
  1. ADCIRCA [Suspect]
     Active Substance: TADALAFIL
     Indication: PULMONARY ARTERIAL HYPERTENSION
     Route: 048
  2. SPIRONOLACTONE. [Concomitant]
     Active Substance: SPIRONOLACTONE
  3. METOPROLOL. [Concomitant]
     Active Substance: METOPROLOL
  4. MORPHINE [Concomitant]
     Active Substance: MORPHINE
  5. AMIODARONE [Concomitant]
     Active Substance: AMIODARONE
  6. LYRICA [Concomitant]
     Active Substance: PREGABALIN
  7. POLYETHE GLYCOL [Concomitant]
  8. ZOLPIDEM [Concomitant]
     Active Substance: ZOLPIDEM\ZOLPIDEM TARTRATE
  9. SMZ-TMP [Concomitant]
     Active Substance: SULFAMETHOXAZOLE\TRIMETHOPRIM
  10. PREVALITE [Concomitant]
     Active Substance: CHOLESTYRAMINE
  11. SUMATRIPTAN. [Concomitant]
     Active Substance: SUMATRIPTAN
  12. METHIMAZOLE. [Concomitant]
     Active Substance: METHIMAZOLE
  13. XIFAXAN [Concomitant]
     Active Substance: RIFAXIMIN
  14. OXYCODONE [Concomitant]
     Active Substance: OXYCODONE
  15. AZITHROMYCIN ANHYDROUS. [Concomitant]
     Active Substance: AZITHROMYCIN ANHYDROUS
  16. FENTANYL. [Concomitant]
     Active Substance: FENTANYL
  17. FUROSEMIDE. [Concomitant]
     Active Substance: FUROSEMIDE
  18. XARELTO [Concomitant]
     Active Substance: RIVAROXABAN
  19. ALPRAZOLAM. [Concomitant]
     Active Substance: ALPRAZOLAM
  20. NICOTINE. [Concomitant]
     Active Substance: NICOTINE

REACTIONS (2)
  - Therapy cessation [None]
  - Hospitalisation [None]

NARRATIVE: CASE EVENT DATE: 2017
